FAERS Safety Report 7539938-5 (Version None)
Quarter: 2011Q2

REPORT INFORMATION
  Report Type: 
  Country: None (occurrence: None)
  Receive Date: 20110610
  Receipt Date: 20110531
  Transmission Date: 20111010
  Serious: Yes (Death, Hospitalization)
  Sender: FDA-Public Use
  Company Number: DE-SANOFI-AVENTIS-2011SA034668

PATIENT

DRUGS (4)
  1. METHOTREXATE [Suspect]
     Indication: WEGENER'S GRANULOMATOSIS
     Dosage: MEDIAN DOSE: 15-30 MG
     Route: 065
  2. PREDNISOLONE [Concomitant]
  3. LEFLUNOMIDE [Suspect]
     Indication: WEGENER'S GRANULOMATOSIS
     Dosage: MEDIAN DOSE: 20-40 MG
     Route: 048
  4. FOLIC ACID [Concomitant]

REACTIONS (20)
  - IMPAIRED HEALING [None]
  - SKIN MASS [None]
  - DIARRHOEA [None]
  - PNEUMOCYSTIS JIROVECI PNEUMONIA [None]
  - MYELODYSPLASTIC SYNDROME [None]
  - INFECTION [None]
  - LEUKOPENIA [None]
  - NEOPLASM [None]
  - MENTAL DISORDER [None]
  - CONJUNCTIVITIS [None]
  - HYPERTENSION [None]
  - NAUSEA [None]
  - PNEUMONIA [None]
  - ERYSIPELAS [None]
  - CYTOMEGALOVIRUS INFECTION [None]
  - HEPATIC ENZYME INCREASED [None]
  - SINUSITIS [None]
  - SKIN INFECTION [None]
  - OESOPHAGEAL CARCINOMA [None]
  - BRONCHITIS [None]
